FAERS Safety Report 10580323 (Version 1)
Quarter: 2014Q4

REPORT INFORMATION
  Report Type: Spontaneous
  Country: IT (occurrence: IT)
  Receive Date: 20141112
  Receipt Date: 20141112
  Transmission Date: 20150529
  Serious: Yes (Hospitalization)
  Sender: FDA-Public Use
  Company Number: IT-GE HEALTHCARE MEDICAL DIAGNOSTICS-VISP-PR-1411S-0484

PATIENT
  Age: 49 Year
  Sex: Female

DRUGS (11)
  1. VISIPAQUE [Suspect]
     Active Substance: IODIXANOL
     Indication: PRODUCT USED FOR UNKNOWN INDICATION
     Route: 013
     Dates: start: 20141006, end: 20141006
  2. LIDOCAINE HCL [Suspect]
     Active Substance: LIDOCAINE HYDROCHLORIDE
     Route: 042
     Dates: start: 20141006, end: 20141006
  3. ASCRIPTIN [Concomitant]
     Active Substance: ASPIRIN
     Route: 048
  4. EPSOCLAR [Concomitant]
     Active Substance: HEPARIN SODIUM
     Route: 042
  5. SEVOFLURANCE BAXTER [Suspect]
     Active Substance: SEVOFLURANE
     Route: 055
     Dates: start: 20141006, end: 20141006
  6. PROPOFOL B. BRAUN [Suspect]
     Active Substance: PROPOFOL
     Route: 042
     Dates: start: 20141006, end: 20141006
  7. ULTIVA [Suspect]
     Active Substance: REMIFENTANIL HYDROCHLORIDE
     Route: 042
     Dates: start: 20141006, end: 20141006
  8. ESMERON [Suspect]
     Active Substance: ROCURONIUM BROMIDE
     Route: 042
     Dates: start: 20141006, end: 20141006
  9. VISIPAQUE [Suspect]
     Active Substance: IODIXANOL
     Indication: DIAGNOSTIC PROCEDURE
  10. TIKLID [Concomitant]
     Active Substance: TICLOPIDINE HYDROCHLORIDE
     Route: 048
  11. ZANTAC [Concomitant]
     Active Substance: RANITIDINE HYDROCHLORIDE
     Route: 048
     Dates: start: 20140926, end: 20141006

REACTIONS (3)
  - Neurotoxicity [Recovered/Resolved]
  - Aphasia [Recovered/Resolved]
  - Hemiparesis [Recovered/Resolved]

NARRATIVE: CASE EVENT DATE: 20141006
